FAERS Safety Report 9308113 (Version 1)
Quarter: 2013Q2

REPORT INFORMATION
  Report Type: Spontaneous
  Country: US (occurrence: US)
  Receive Date: 20130524
  Receipt Date: 20130524
  Transmission Date: 20140414
  Serious: No
  Sender: FDA-Public Use
  Company Number: US-PFIZER INC-2013157287

PATIENT
  Age: 15 Year
  Sex: Male
  Weight: 58.05 kg

DRUGS (2)
  1. ZITHROMAX [Suspect]
     Indication: LOWER RESPIRATORY TRACT INFECTION
     Dosage: 500 MG THE FIRST DAY AND THEN 250 MG DAILY
     Route: 048
     Dates: start: 20130518
  2. ATENOLOL [Concomitant]
     Dosage: UNK

REACTIONS (1)
  - Feeling abnormal [Unknown]
